FAERS Safety Report 8281174-1 (Version None)
Quarter: 2012Q2

REPORT INFORMATION
  Report Type: 
  Country: None (occurrence: None)
  Receive Date: 20120413
  Receipt Date: 20120404
  Transmission Date: 20120825
  Serious: No
  Sender: FDA-Public Use
  Company Number: US-BIOGENIDEC-2012BI010590

PATIENT
  Age: 55 Year
  Sex: Female

DRUGS (2)
  1. TYSABRI [Suspect]
     Indication: MULTIPLE SCLEROSIS
     Route: 042
     Dates: start: 20080523, end: 20110101
  2. TYSABRI [Suspect]
     Route: 042
     Dates: start: 20110101, end: 20120124

REACTIONS (2)
  - WHITE BLOOD CELL COUNT INCREASED [None]
  - HERPES ZOSTER [None]
